FAERS Safety Report 15056864 (Version 1)
Quarter: 2018Q2

REPORT INFORMATION
  Report Type: Spontaneous
  Country: US (occurrence: US)
  Receive Date: 20180604
  Receipt Date: 20180604
  Transmission Date: 20180711
  Serious: No
  Sender: FDA-Public Use
  Company Number: None

PATIENT
  Age: 40 Year
  Sex: Female
  Weight: 67.5 kg

DRUGS (1)
  1. CIPROFLOXACIN HCL 500 MG TAB [Suspect]
     Active Substance: CIPROFLOXACIN HYDROCHLORIDE
     Indication: URINARY TRACT INFECTION
     Dosage: ?          QUANTITY:10 TABLET(S);?
     Route: 048
     Dates: start: 20180521, end: 20180526

REACTIONS (13)
  - Vision blurred [None]
  - Nausea [None]
  - Gait disturbance [None]
  - Tendon pain [None]
  - Fatigue [None]
  - Hypoaesthesia oral [None]
  - Hypoaesthesia [None]
  - Dizziness [None]
  - Arthralgia [None]
  - Tongue discolouration [None]
  - Limb discomfort [None]
  - Swollen tongue [None]
  - Muscular weakness [None]

NARRATIVE: CASE EVENT DATE: 20180521
